FAERS Safety Report 5803314-3 (Version None)
Quarter: 2008Q3

REPORT INFORMATION
  Report Type: 
  Country: None (occurrence: None)
  Receive Date: 20080708
  Receipt Date: 20080703
  Transmission Date: 20090109
  Serious: Yes (Other)
  Sender: FDA-Public Use
  Company Number: B0528169A

PATIENT
  Age: 43 Year
  Sex: Male

DRUGS (2)
  1. SEROXAT [Suspect]
     Dosage: 20MG TWICE PER DAY
     Route: 048
  2. BEER [Concomitant]
     Route: 048

REACTIONS (2)
  - AGGRESSION [None]
  - AMNESIA [None]
